FAERS Safety Report 8239671 (Version 2)
Quarter: 2014Q2

REPORT INFORMATION
  Report Type: Spontaneous
  Country: KR (occurrence: None)
  Receive Date: 20111107
  Receipt Date: 20140403
  Transmission Date: 20141212
  Serious: Yes (Hospitalization)
  Sender: FDA-Public Use
  Company Number: KR-JNJFOC-20110812171

PATIENT
  Age: 68 Year
  Sex: Female
  Weight: 67.6 kg

DRUGS (8)
  1. DACOGEN [Suspect]
     Indication: MYELODYSPLASTIC SYNDROME
     Route: 042
     Dates: start: 20110117, end: 20110121
  2. PHENIRAMINE [Concomitant]
  3. DIAZEPAM [Concomitant]
  4. LANSOPRAZOLE [Concomitant]
  5. MACPERAN (METOCLOPRAMIDE HYDROCHLORIDE) [Concomitant]
  6. DIGESTIVE MEDICINE (DIGESTIVES, INCL ENZYMES) [Concomitant]
  7. ULTRACET [Concomitant]
  8. BIOFLOR (SACCHAROMYCES BOULARDII) [Concomitant]

REACTIONS (5)
  - Diarrhoea [None]
  - Pancytopenia [None]
  - Cholangitis acute [None]
  - Cholecystitis [None]
  - Liver abscess [None]
